FAERS Safety Report 8100549-4 (Version None)
Quarter: 2012Q1

REPORT INFORMATION
  Report Type: 
  Country: None (occurrence: None)
  Receive Date: 20120126
  Receipt Date: 20050214
  Transmission Date: 20120608
  Serious: Yes (Hospitalization)
  Sender: FDA-Public Use
  Company Number: 2012-0179

PATIENT
  Age: 14 Year
  Sex: Male
  Weight: 24.6 kg

DRUGS (1)
  1. INCRELEX [Suspect]
     Indication: BLOOD GROWTH HORMONE ABNORMAL
     Dosage: 240 UG/KG (120 UG/KG, 2 IN 1 D), SUBCUTANEOUS
     Route: 058
     Dates: start: 19980218

REACTIONS (2)
  - FLANK PAIN [None]
  - URINE ANALYSIS ABNORMAL [None]
